FAERS Safety Report 25905971 (Version 1)
Quarter: 2025Q4

REPORT INFORMATION
  Report Type: Spontaneous
  Country: US (occurrence: None)
  Receive Date: 20251009
  Receipt Date: 20251009
  Transmission Date: 20260117
  Serious: Yes (Life-Threatening)
  Sender: FDA-CTU
  Company Number: None

PATIENT
  Age: 85 Year
  Sex: Female

DRUGS (1)
  1. IMATINIB MESYLATE [Suspect]
     Active Substance: IMATINIB MESYLATE
     Indication: Chronic myeloid leukaemia
     Dosage: 400MG DAILY

REACTIONS (3)
  - Nausea [None]
  - Cerebrovascular accident [None]
  - Therapy interrupted [None]
